FAERS Safety Report 6824397-8 (Version None)
Quarter: 2010Q3

REPORT INFORMATION
  Report Type: 
  Country: None (occurrence: None)
  Receive Date: 20100708
  Receipt Date: 20061018
  Transmission Date: 20110219
  Serious: No
  Sender: FDA-Public Use
  Company Number: US-PFIZER INC-2006129064

PATIENT
  Age: 42 Year
  Sex: Male
  Weight: 63.5 kg

DRUGS (6)
  1. CHANTIX [Suspect]
     Indication: SMOKING CESSATION THERAPY
     Dates: start: 20061004
  2. TYLENOL [Concomitant]
  3. CENTRUM [Concomitant]
  4. ADVAIR DISKUS 100/50 [Concomitant]
  5. ALBUTEROL [Concomitant]
  6. SPIRIVA [Concomitant]

REACTIONS (3)
  - MIDDLE INSOMNIA [None]
  - NAUSEA [None]
  - NOCTURIA [None]
